FAERS Safety Report 7758591-9 (Version None)
Quarter: 2011Q3

REPORT INFORMATION
  Report Type: 
  Country: None (occurrence: None)
  Receive Date: 20110919
  Receipt Date: 20110906
  Transmission Date: 20111222
  Serious: Yes (Death, Hospitalization, Other)
  Sender: FDA-Public Use
  Company Number: LT-ELI_LILLY_AND_COMPANY-LT201109002395

PATIENT
  Sex: Female

DRUGS (3)
  1. OLANZAPINE [Suspect]
     Indication: SCHIZOPHRENIA
     Dosage: 300 MG, EVEY TWO WEEKS
     Dates: start: 20110201
  2. OLANZAPINE [Suspect]
     Dosage: 405 MG, MONTHLY (1/M)
     Route: 030
     Dates: start: 20110401, end: 20110701
  3. ZYPREXA [Suspect]
     Indication: SCHIZOPHRENIA
     Dosage: 10 MG, UNK

REACTIONS (6)
  - BLOOD GLUCOSE INCREASED [None]
  - INTENTIONAL DRUG MISUSE [None]
  - CONDITION AGGRAVATED [None]
  - DYSARTHRIA [None]
  - DEATH [None]
  - TUBERCULOSIS [None]
